FAERS Safety Report 9587273 (Version 2)
Quarter: 2015Q2

REPORT INFORMATION
  Report Type: Spontaneous
  Country: IN (occurrence: IN)
  Receive Date: 20131003
  Receipt Date: 20150514
  Transmission Date: 20150821
  Serious: Yes (Hospitalization)
  Sender: FDA-Public Use
  Company Number: PHHY2013IN107578

PATIENT
  Age: 22 Year
  Sex: Male

DRUGS (2)
  1. RANITIDINE [Concomitant]
     Active Substance: RANITIDINE\RANITIDINE HYDROCHLORIDE
     Indication: GASTRITIS
     Dosage: 300 MG, QD
     Route: 048
  2. MONTELUKAST SODIUM. [Suspect]
     Active Substance: MONTELUKAST SODIUM
     Indication: RHINITIS ALLERGIC
     Dosage: 10 MG, QD
     Route: 048

REACTIONS (12)
  - Weight increased [Recovering/Resolving]
  - Hypercholesterolaemia [Recovering/Resolving]
  - Fat tissue increased [Recovering/Resolving]
  - Oedematous pancreatitis [Recovering/Resolving]
  - Abdominal distension [Recovering/Resolving]
  - Emotional distress [Recovering/Resolving]
  - Hypertriglyceridaemia [Recovering/Resolving]
  - Pancreatitis acute [Recovering/Resolving]
  - Abdominal tenderness [Recovering/Resolving]
  - Vomiting [Recovering/Resolving]
  - Abdominal pain [Recovering/Resolving]
  - Skin striae [Recovering/Resolving]
